FAERS Safety Report 6697789-8 (Version None)
Quarter: 2010Q2

REPORT INFORMATION
  Report Type: 
  Country: None (occurrence: None)
  Receive Date: 20100423
  Receipt Date: 20100408
  Transmission Date: 20101027
  Serious: Yes (Other)
  Sender: FDA-Public Use
  Company Number: CA-1181556

PATIENT

DRUGS (1)
  1. BSS(BSS) IRRIGATION SOLUTION [Suspect]
     Dosage: INTRAOCULAR
     Route: 031

REACTIONS (1)
  - TOXIC ANTERIOR SEGMENT SYNDROME [None]
